FAERS Safety Report 6636796-8 (Version None)
Quarter: 2010Q1

REPORT INFORMATION
  Report Type: 
  Country: None (occurrence: None)
  Receive Date: 20100316
  Receipt Date: 20100304
  Transmission Date: 20100710
  Serious: Yes (Other)
  Sender: FDA-Public Use
  Company Number: FR-PFIZER INC-2009302023

PATIENT
  Age: 46 Year
  Sex: Male
  Weight: 78.5 kg

DRUGS (1)
  1. DOSTINEX [Suspect]
     Indication: HYPERPROLACTINAEMIA
     Dosage: 0.5 MG, 1X/DAY
     Dates: start: 20030101

REACTIONS (3)
  - DRY EYE [None]
  - KERATITIS [None]
  - PARAESTHESIA [None]
